FAERS Safety Report 13687821 (Version 1)
Quarter: 2017Q2

REPORT INFORMATION
  Report Type: Report from Study
  Country: AU (occurrence: AU)
  Receive Date: 20170626
  Receipt Date: 20170626
  Transmission Date: 20170830
  Serious: Yes (Other)
  Sender: FDA-Public Use
  Company Number: AU-ROCHE-1954144

PATIENT
  Sex: Female

DRUGS (2)
  1. PULMOZYME [Concomitant]
     Active Substance: DORNASE ALFA
     Indication: PLEURAL INFECTION
     Route: 034
  2. ALTEPLASE [Suspect]
     Active Substance: ALTEPLASE
     Indication: PLEURAL INFECTION
     Route: 034

REACTIONS (1)
  - Haemoglobin decreased [Recovered/Resolved]
